FAERS Safety Report 9871416 (Version 1)
Quarter: 2014Q1

REPORT INFORMATION
  Report Type: Spontaneous
  Country: US (occurrence: None)
  Receive Date: 20140204
  Receipt Date: 20140204
  Transmission Date: 20141002
  Serious: Yes (Life-Threatening, Hospitalization)
  Sender: FDA-Public Use
  Company Number: None

PATIENT
  Age: 77 Year
  Sex: Female
  Weight: 116 kg

DRUGS (1)
  1. ADENOSINE [Suspect]
     Indication: CARDIAC STRESS TEST
     Route: 042
     Dates: start: 20131112, end: 20131112

REACTIONS (3)
  - Dyspnoea [None]
  - Skin discolouration [None]
  - Cardio-respiratory arrest [None]
